FAERS Safety Report 19191462 (Version 2)
Quarter: 2023Q1

REPORT INFORMATION
  Report Type: Spontaneous
  Country: US (occurrence: US)
  Receive Date: 20210428
  Receipt Date: 20230221
  Transmission Date: 20230418
  Serious: Yes (Other)
  Sender: FDA-Public Use
  Company Number: US-GLAXOSMITHKLINE-USCH2021022440

PATIENT
  Age: 66 Year
  Sex: Female

DRUGS (1)
  1. PREPARATION H RAPID RELIEF (GLYCERIN\LIDOCAINE\PETROLATUM\PHENYLEPHRIN [Suspect]
     Active Substance: GLYCERIN\LIDOCAINE\PETROLATUM\PHENYLEPHRINE HYDROCHLORIDE
     Indication: Product used for unknown indication
     Dosage: UNK
     Dates: start: 20210422

REACTIONS (3)
  - Haemorrhage [Unknown]
  - Wound [Unknown]
  - Wrong technique in product usage process [Unknown]

NARRATIVE: CASE EVENT DATE: 20210422
